FAERS Safety Report 15940848 (Version 3)
Quarter: 2019Q2

REPORT INFORMATION
  Report Type: Report from Study
  Country: BR (occurrence: BR)
  Receive Date: 20190208
  Receipt Date: 20190509
  Transmission Date: 20190711
  Serious: Yes (Other)
  Sender: FDA-Public Use
  Company Number: BR-SHIRE-BR201903845

PATIENT

DRUGS (5)
  1. HYQVIA [Suspect]
     Active Substance: HUMAN IMMUNOGLOBULIN G\HYALURONIDASE RECOMBINANT HUMAN
     Indication: PRIMARY IMMUNODEFICIENCY SYNDROME
     Dosage: UNK, 1X/WEEK
     Route: 058
     Dates: start: 20181213
  2. HYQVIA [Suspect]
     Active Substance: HUMAN IMMUNOGLOBULIN G\HYALURONIDASE RECOMBINANT HUMAN
     Dosage: 22.5 MILLIGRAM, 1X/2WKS
     Route: 058
  3. HIZENTRA [Concomitant]
     Active Substance: HUMAN IMMUNOGLOBULIN G
     Indication: PRODUCT USED FOR UNKNOWN INDICATION
  4. HYQVIA [Suspect]
     Active Substance: HUMAN IMMUNOGLOBULIN G\HYALURONIDASE RECOMBINANT HUMAN
     Dosage: 15 MILLIGRAM
     Route: 058
  5. HYQVIA [Suspect]
     Active Substance: HUMAN IMMUNOGLOBULIN G\HYALURONIDASE RECOMBINANT HUMAN
     Dosage: 7.5 MILLIGRAM
     Route: 058

REACTIONS (13)
  - Malaise [Not Recovered/Not Resolved]
  - Dizziness [Unknown]
  - Nausea [Unknown]
  - Back pain [Unknown]
  - Asthenia [Not Recovered/Not Resolved]
  - Feeling hot [Recovering/Resolving]
  - Pain [Unknown]
  - Labyrinthitis [Not Recovered/Not Resolved]
  - Fatigue [Not Recovered/Not Resolved]
  - Cardiac disorder [Not Recovered/Not Resolved]
  - Tremor [Unknown]
  - Pyrexia [Recovered/Resolved]
  - Hypotension [Unknown]

NARRATIVE: CASE EVENT DATE: 20181221
